FAERS Safety Report 4785515-9 (Version None)
Quarter: 2005Q4

REPORT INFORMATION
  Report Type: 
  Country: None (occurrence: None)
  Receive Date: 20051003
  Receipt Date: 20050919
  Transmission Date: 20060501
  Serious: Yes (Hospitalization, Other)
  Sender: FDA-Public Use
  Company Number: CA-JNJFOC-20050405272

PATIENT
  Age: 35 Year
  Sex: Female

DRUGS (5)
  1. REMICADE [Suspect]
     Route: 042
  2. REMICADE [Suspect]
     Route: 042
  3. REMICADE [Suspect]
     Indication: DRUG USE FOR UNKNOWN INDICATION
     Route: 042
  4. PURINETHOL [Suspect]
  5. PURINETHOL [Suspect]
     Indication: DRUG USE FOR UNKNOWN INDICATION

REACTIONS (7)
  - APLASIA [None]
  - BONE MARROW FAILURE [None]
  - CLOSTRIDIUM COLITIS [None]
  - KLEBSIELLA SEPSIS [None]
  - LIVER ABSCESS [None]
  - STAPHYLOCOCCAL INFECTION [None]
  - SYSTEMIC CANDIDA [None]
